FAERS Safety Report 15923195 (Version 2)
Quarter: 2019Q1

REPORT INFORMATION
  Report Type: Spontaneous
  Country: US (occurrence: US)
  Receive Date: 20190205
  Receipt Date: 20190219
  Transmission Date: 20190417
  Serious: No
  Sender: FDA-Public Use
  Company Number: US-ALLERGAN-1815859US

PATIENT
  Age: 49 Year
  Sex: Female
  Weight: 72.56 kg

DRUGS (2)
  1. BOTOX COSMETIC [Suspect]
     Active Substance: ONABOTULINUMTOXINA
     Indication: SKIN WRINKLING
     Dosage: 4 UNITS, SINGLE
     Route: 030
     Dates: start: 20180303, end: 20180303
  2. BOTOX COSMETIC [Suspect]
     Active Substance: ONABOTULINUMTOXINA
     Dosage: 16 UNITS, SINGLE
     Route: 030
     Dates: start: 20180303, end: 20180303

REACTIONS (4)
  - Nasopharyngitis [Unknown]
  - Vomiting [Unknown]
  - Eyelid ptosis [Recovered/Resolved]
  - Product preparation error [Unknown]

NARRATIVE: CASE EVENT DATE: 20180310
